FAERS Safety Report 17070673 (Version 2)
Quarter: 2019Q4

REPORT INFORMATION
  Report Type: Spontaneous
  Country: FR (occurrence: FR)
  Receive Date: 20191125
  Receipt Date: 20191206
  Transmission Date: 20200122
  Serious: Yes (Death)
  Sender: FDA-Public Use
  Company Number: FR-CATALYST PHARMACEUTICALS, INC-2019CAT00635

PATIENT
  Age: 59 Year
  Sex: Male

DRUGS (9)
  1. FIRDAPSE [Suspect]
     Active Substance: AMIFAMPRIDINE
     Indication: MYASTHENIC SYNDROME
     Dosage: 10 MG, 3X/DAY
     Route: 048
     Dates: start: 20130625, end: 20130630
  2. MESTINON [Suspect]
     Active Substance: PYRIDOSTIGMINE BROMIDE
     Indication: MYASTHENIC SYNDROME
     Dosage: 60 MG, 2X/DAY
     Dates: start: 20130625, end: 20130701
  3. AMLODIPINE [Concomitant]
     Active Substance: AMLODIPINE BESYLATE
     Dosage: UNK
     Dates: start: 20130627, end: 20130718
  4. ZOPHREN [Concomitant]
     Active Substance: ONDANSETRON
     Dosage: UNK
     Dates: start: 20130627, end: 20130718
  5. EUPANTOL [Concomitant]
     Active Substance: PANTOPRAZOLE SODIUM
     Dosage: UNK
     Dates: start: 20130627, end: 20130718
  6. FIRDAPSE [Suspect]
     Active Substance: AMIFAMPRIDINE
     Dosage: 10 MG, 4X/DAY
     Route: 048
     Dates: start: 20130701, end: 20130718
  7. KARDEGIC [Concomitant]
     Active Substance: ASPIRIN DL-LYSINE
     Dosage: UNK
     Dates: start: 20130627, end: 20130718
  8. SOLUPRED [Concomitant]
     Dosage: UNK
     Dates: start: 20130628, end: 20130718
  9. LYRICA [Suspect]
     Active Substance: PREGABALIN
     Indication: MYASTHENIC SYNDROME
     Dosage: 25 MG, 2X/DAY
     Dates: start: 20130627, end: 20130718

REACTIONS (1)
  - Cardio-respiratory arrest [Fatal]

NARRATIVE: CASE EVENT DATE: 20130705
